FAERS Safety Report 8968239 (Version 1)
Quarter: 2012Q4

REPORT INFORMATION
  Report Type: Spontaneous
  Country: DK (occurrence: None)
  Receive Date: 20121210
  Receipt Date: 20121210
  Transmission Date: 20130627
  Serious: Yes (Hospitalization)
  Sender: FDA-Public Use
  Company Number: 2012MA013865

PATIENT
  Age: 78 Year
  Sex: Male

DRUGS (3)
  1. BISOPROLOL FUMARATE AND HYDROCHLOROTHIAZIDE [Suspect]
     Indication: LEFT VENTRICULAR DYSFUNCTION
     Route: 048
     Dates: start: 20120920
  2. ACETYLSALICYLIC ACID [Suspect]
     Route: 048
     Dates: start: 20120920
  3. PERINDOPRIL [Suspect]
     Route: 048
     Dates: start: 20120920

REACTIONS (1)
  - Abscess [None]
